FAERS Safety Report 9991709 (Version 1)
Quarter: 2014Q1

REPORT INFORMATION
  Report Type: Spontaneous
  Country: US (occurrence: US)
  Receive Date: 20140310
  Receipt Date: 20140310
  Transmission Date: 20141002
  Serious: Yes (Other)
  Sender: FDA-Public Use
  Company Number: US-PFIZER INC-2014067253

PATIENT
  Sex: Female

DRUGS (2)
  1. NEURONTIN [Suspect]
     Indication: FIBROMYALGIA
     Dosage: UNK
  2. NEURONTIN [Suspect]
     Dosage: UNK (DOSE REDUCED)
     Dates: start: 20120701, end: 20121102

REACTIONS (14)
  - Aphagia [Unknown]
  - Mental impairment [Unknown]
  - Suicidal ideation [Unknown]
  - Coordination abnormal [Unknown]
  - Hypoaesthesia oral [Not Recovered/Not Resolved]
  - Nerve compression [Unknown]
  - Anxiety [Unknown]
  - Gastric disorder [Unknown]
  - Fall [Unknown]
  - Visual impairment [Unknown]
  - Neuralgia [Unknown]
  - Weight decreased [Unknown]
  - Tooth disorder [Unknown]
  - Hypoaesthesia [Not Recovered/Not Resolved]
